FAERS Safety Report 9274681 (Version 1)
Quarter: 2013Q2

REPORT INFORMATION
  Report Type: Spontaneous
  Country: DE (occurrence: DE)
  Receive Date: 20130507
  Receipt Date: 20130507
  Transmission Date: 20140414
  Serious: Yes (Other)
  Sender: FDA-Public Use
  Company Number: DE-AMGEN-DEUSP2012059703

PATIENT
  Age: 60 Year
  Sex: Female
  Weight: 80 kg

DRUGS (6)
  1. ENBREL [Suspect]
     Indication: PRODUCT USED FOR UNKNOWN INDICATION
     Dosage: 50 MG, WEEKLY
     Route: 058
     Dates: start: 200705, end: 201207
  2. ENBREL [Suspect]
     Dosage: 25 MG, WEEKLY
     Route: 058
     Dates: start: 201301
  3. ENBREL [Suspect]
     Dosage: 50 MG, WEEKLY
     Route: 058
     Dates: start: 201303
  4. METHOTREXATE SODIUM [Suspect]
     Indication: POLYARTHRITIS
     Dosage: 10 MG, WEEKLY
     Route: 058
     Dates: start: 1998, end: 201206
  5. IBUHEXAL                           /00109201/ [Concomitant]
     Indication: POLYARTHRITIS
     Dosage: 600 MG, 2X/DAY
     Dates: start: 2003
  6. FOLIC ACID [Concomitant]
     Dosage: 5 MG, WEEKLY
     Dates: start: 2003, end: 201206

REACTIONS (2)
  - Leukopenia [Recovered/Resolved]
  - Bone marrow failure [Unknown]
